FAERS Safety Report 9797999 (Version 3)
Quarter: 2014Q3

REPORT INFORMATION
  Report Type: Spontaneous
  Country: US (occurrence: US)
  Receive Date: 20140106
  Receipt Date: 20140711
  Transmission Date: 20150326
  Serious: Yes (Other)
  Sender: FDA-Public Use
  Company Number: US-NAPPMUNDI-USA-2013-0109957

PATIENT
  Sex: Female
  Weight: 58.96 kg

DRUGS (5)
  1. XANAX [Concomitant]
     Active Substance: ALPRAZOLAM
     Indication: PRODUCT USED FOR UNKNOWN INDICATION
     Dosage: AS NEEDED NO MORE THAN 1 MG A DAY
  2. OXYCONTIN [Suspect]
     Active Substance: OXYCODONE HYDROCHLORIDE
     Indication: PAIN
     Dosage: 15 MG, DAILY
     Route: 048
  3. OXYCONTIN [Suspect]
     Active Substance: OXYCODONE HYDROCHLORIDE
     Dosage: 30 MG, BID
     Route: 048
  4. OXYCONTIN [Suspect]
     Active Substance: OXYCODONE HYDROCHLORIDE
     Dosage: 20 MG, BID
     Route: 048
  5. OXYCONTIN [Suspect]
     Active Substance: OXYCODONE HYDROCHLORIDE
     Dosage: 40 MG, TID
     Route: 048

REACTIONS (14)
  - Tinnitus [Unknown]
  - Drug withdrawal syndrome [Unknown]
  - Feeling abnormal [Unknown]
  - Disturbance in attention [Unknown]
  - Meningitis [Unknown]
  - Cerebrospinal fluid leakage [Unknown]
  - Tooth fracture [Unknown]
  - Drug effect decreased [Unknown]
  - Aneurysm [Unknown]
  - Tooth injury [Unknown]
  - Memory impairment [Unknown]
  - Rotator cuff syndrome [Unknown]
  - Therapeutic response changed [Unknown]
  - Pain [Unknown]

NARRATIVE: CASE EVENT DATE: 2011
